FAERS Safety Report 8913371 (Version 1)
Quarter: 2012Q4

REPORT INFORMATION
  Report Type: 
  Country: GB (occurrence: GB)
  Receive Date: 20121116
  Receipt Date: 20121116
  Transmission Date: 20130627
  Serious: Yes (Other)
  Sender: FDA-Public Use
  Company Number: GB-PFIZER INC-2012283677

PATIENT
  Sex: Male

DRUGS (2)
  1. RAPAMUNE [Suspect]
     Indication: LIVER TRANSPLANT
  2. RAPAMUNE [Suspect]
     Indication: END STAGE RENAL FAILURE

REACTIONS (2)
  - Angiopathy [Unknown]
  - Off label use [Unknown]
